FAERS Safety Report 9397713 (Version 1)
Quarter: 2013Q3

REPORT INFORMATION
  Report Type: Spontaneous
  Country: CA (occurrence: CA)
  Receive Date: 20130712
  Receipt Date: 20130712
  Transmission Date: 20140515
  Serious: Yes (Other)
  Sender: FDA-Public Use
  Company Number: CA-ASTELLAS-2013US007301

PATIENT
  Sex: Female

DRUGS (2)
  1. MYRBETRIQ [Suspect]
     Indication: HYPERTONIC BLADDER
     Dosage: UNK
     Route: 048
  2. MYRBETRIQ [Suspect]
     Dosage: UNK
     Route: 048

REACTIONS (4)
  - Balance disorder [Unknown]
  - Depression [Unknown]
  - Dizziness [Unknown]
  - Rash [Unknown]
